FAERS Safety Report 15238588 (Version 3)
Quarter: 2018Q3

REPORT INFORMATION
  Report Type: Spontaneous
  Country: DE (occurrence: DE)
  Receive Date: 20180803
  Receipt Date: 20180905
  Transmission Date: 20181010
  Serious: Yes (Life-Threatening, Other)
  Sender: FDA-Public Use
  Company Number: DE-009507513-1808DEU000262

PATIENT
  Age: 68 Year
  Sex: Male
  Weight: 110 kg

DRUGS (1)
  1. STEGLUJAN [Suspect]
     Active Substance: ERTUGLIFLOZIN PIDOLATE\SITAGLIPTIN PHOSPHATE
     Indication: TYPE 2 DIABETES MELLITUS
     Dosage: DOSE 5/100 MG
     Route: 048
     Dates: start: 20180720, end: 20180729

REACTIONS (2)
  - Pyelonephritis [Recovered/Resolved]
  - Pyelocystitis [Not Recovered/Not Resolved]

NARRATIVE: CASE EVENT DATE: 20180729
